FAERS Safety Report 5990030-0 (Version None)
Quarter: 2008Q4

REPORT INFORMATION
  Report Type: 
  Country: None (occurrence: None)
  Receive Date: 20081210
  Receipt Date: 20081124
  Transmission Date: 20090506
  Serious: Yes (Other)
  Sender: FDA-Public Use
  Company Number: 037287

PATIENT
  Age: 27 Year
  Sex: Male

DRUGS (2)
  1. CLARAVIS [Suspect]
     Dosage: ORAL
     Route: 048
     Dates: start: 20081022
  2. SOTRET [Suspect]
     Dosage: ORAL
     Route: 048
     Dates: start: 20080804

REACTIONS (1)
  - SUICIDAL IDEATION [None]
